FAERS Safety Report 8770618 (Version 3)
Quarter: 2012Q4

REPORT INFORMATION
  Report Type: 
  Country: AU (occurrence: AU)
  Receive Date: 20120906
  Receipt Date: 20121012
  Transmission Date: 20130627
  Serious: Yes (Hospitalization)
  Sender: FDA-Public Use
  Company Number: AU-CELGENEUS-008-20785-12082890

PATIENT
  Age: 85 Year
  Sex: Female
  Weight: 40 kg

DRUGS (4)
  1. THALIDOMIDE [Suspect]
     Indication: MULTIPLE MYELOMA
     Dosage: 100 Milligram
     Route: 048
     Dates: start: 20120813
  2. MELPHALAN [Concomitant]
     Indication: MULTIPLE MYELOMA
     Dosage: 5 Milligram
     Route: 065
     Dates: start: 20120813
  3. PREDNISOLONE [Concomitant]
     Indication: MULTIPLE MYELOMA
     Dosage: 50 Milligram
     Route: 065
     Dates: start: 20120813
  4. ZOMETA [Concomitant]
     Indication: MULTIPLE MYELOMA
     Dosage: .1333 Milligram
     Route: 041
     Dates: start: 20120824

REACTIONS (2)
  - Sternal fracture [Recovering/Resolving]
  - Thoracic vertebral fracture [Recovering/Resolving]
